FAERS Safety Report 18632632 (Version 2)
Quarter: 2021Q2

REPORT INFORMATION
  Report Type: Spontaneous
  Country: US (occurrence: US)
  Receive Date: 20201218
  Receipt Date: 20210408
  Transmission Date: 20210717
  Serious: Yes (Other)
  Sender: FDA-Public Use
  Company Number: US-BAYER-2020-274582

PATIENT
  Age: 31 Year
  Sex: Female

DRUGS (1)
  1. KYLEENA [Suspect]
     Active Substance: LEVONORGESTREL
     Indication: CONTRACEPTION
     Dosage: 17.5?G PER DAY, CONTINUOUSLY
     Route: 015
     Dates: start: 20200911, end: 20200916

REACTIONS (3)
  - Medical device monitoring error [None]
  - Device physical property issue [None]
  - Device breakage [None]

NARRATIVE: CASE EVENT DATE: 20200911
